FAERS Safety Report 5538055-3 (Version None)
Quarter: 2007Q4

REPORT INFORMATION
  Report Type: 
  Country: None (occurrence: None)
  Receive Date: 20071207
  Receipt Date: 20071206
  Transmission Date: 20080405
  Serious: Yes (Life-Threatening, Hospitalization)
  Sender: FDA-Public Use
  Company Number: JP-BOEHRINGER INGELHEIM PHARMACEUTICALS, INC.-2007-BP-25246NB

PATIENT
  Age: 80 Year
  Sex: Female
  Weight: 60 kg

DRUGS (6)
  1. MICARDIS [Suspect]
     Indication: HYPERTENSION
     Route: 048
     Dates: end: 20071109
  2. HERBESSER R [Concomitant]
     Indication: HYPERTENSION
     Route: 048
     Dates: end: 20071109
  3. ASPIRIN [Concomitant]
     Indication: ANGINA PECTORIS
     Route: 048
  4. LIPITOR [Concomitant]
     Indication: HYPERLIPIDAEMIA
     Route: 048
  5. EPADEL [Concomitant]
     Indication: HYPERLIPIDAEMIA
     Route: 048
  6. BASEN [Concomitant]
     Indication: DIABETES MELLITUS
     Route: 048
     Dates: end: 20071109

REACTIONS (4)
  - BRADYCARDIA [None]
  - CARDIOGENIC SHOCK [None]
  - HYPERKALAEMIA [None]
  - RENAL FAILURE ACUTE [None]
